FAERS Safety Report 4471559-3 (Version None)
Quarter: 2004Q4

REPORT INFORMATION
  Report Type: 
  Country: None (occurrence: None)
  Receive Date: 20041012
  Receipt Date: 20040930
  Transmission Date: 20050328
  Serious: Yes (Death)
  Sender: FDA-Public Use
  Company Number: JPKYO-L-20040001

PATIENT
  Age: 67 Year
  Sex: Male

DRUGS (10)
  1. NAVELBINE [Suspect]
     Dosage: 30MG PER DAY
     Route: 042
     Dates: start: 20030305, end: 20030507
  2. GEMZAR [Suspect]
  3. IRESSA [Suspect]
  4. NASEA [Concomitant]
     Dates: start: 20030305, end: 20030507
  5. MUCOSOLVAN [Concomitant]
     Dates: start: 20021101, end: 20030514
  6. LOXONIN [Concomitant]
     Dates: start: 20021101, end: 20030520
  7. CYTOTEC [Concomitant]
     Dates: start: 20021101, end: 20030520
  8. MAGNESIUM OXIDE [Concomitant]
     Dates: start: 20021101, end: 20030520
  9. NOVAMIN [Concomitant]
     Dates: start: 20021201, end: 20030520
  10. FENTANYL [Concomitant]
     Dates: start: 20030430, end: 20030522

REACTIONS (11)
  - CARDIAC FAILURE [None]
  - COUGH [None]
  - CREPITATIONS [None]
  - DYSPNOEA [None]
  - HYPOXIA [None]
  - INTERSTITIAL LUNG DISEASE [None]
  - LYMPHANGIOMA [None]
  - OEDEMA PERIPHERAL [None]
  - PYREXIA [None]
  - RESPIRATORY DISTRESS [None]
  - RESPIRATORY FAILURE [None]
